FAERS Safety Report 19154749 (Version 1)
Quarter: 2021Q2

REPORT INFORMATION
  Report Type: Spontaneous
  Country: FR (occurrence: FR)
  Receive Date: 20210419
  Receipt Date: 20210419
  Transmission Date: 20210717
  Serious: Yes (Other)
  Sender: FDA-Public Use
  Company Number: FR-PFIZER INC-2021379440

PATIENT
  Age: 59 Year
  Sex: Male
  Weight: 62 kg

DRUGS (2)
  1. ZIRABEV [Suspect]
     Active Substance: BEVACIZUMAB-BVZR
     Indication: HEPATOCELLULAR CARCINOMA
     Dosage: 930 MG, CYCLIC
     Route: 041
     Dates: start: 20200821, end: 20210310
  2. ATEZOLIZUMAB. [Suspect]
     Active Substance: ATEZOLIZUMAB
     Indication: HEPATOCELLULAR CARCINOMA
     Dosage: 1200 MG, CYCLIC
     Route: 041
     Dates: start: 20200821, end: 20210310

REACTIONS (2)
  - Off label use [Unknown]
  - Hypothyroidism [Recovering/Resolving]

NARRATIVE: CASE EVENT DATE: 20200821
